FAERS Safety Report 6271857-7 (Version None)
Quarter: 2009Q3

REPORT INFORMATION
  Report Type: 
  Country: None (occurrence: None)
  Receive Date: 20090717
  Receipt Date: 20090706
  Transmission Date: 20100115
  Serious: Yes (Hospitalization)
  Sender: FDA-Public Use
  Company Number: PHHY2009GT27313

PATIENT
  Age: 63 Year
  Sex: Female

DRUGS (1)
  1. DIOVAN [Suspect]
     Indication: HYPERTENSION
     Dosage: 320 MG / DAY
     Route: 048

REACTIONS (3)
  - HYPOMAGNESAEMIA [None]
  - SYNCOPE [None]
  - VENTRICULAR EXTRASYSTOLES [None]
